FAERS Safety Report 9170658 (Version 1)
Quarter: 2013Q1

REPORT INFORMATION
  Report Type: Spontaneous
  Country: GB (occurrence: None)
  Receive Date: 20130311
  Receipt Date: 20130311
  Transmission Date: 20140127
  Serious: Yes (Hospitalization)
  Sender: FDA-Public Use
  Company Number: AG-2013-0735

PATIENT
  Age: 83 Year
  Sex: Female
  Weight: 59.9 kg

DRUGS (7)
  1. CHLORAMBUCIL (CHLORAMBUCIL) (UNKNOWN) [Suspect]
     Indication: CHRONIC LYMPHOCYTIC LEUKAEMIA
     Dosage: UNKNOWN (12 MILLIGRAM, UNKNOWN), ORAL
     Route: 048
     Dates: start: 20130207
  2. OFATUMUMAB (OFATUMUMAB) (UNKNOWN) [Suspect]
     Indication: CHRONIC LYMPHOCYTIC LEUKAEMIA
     Dosage: 1000 MILLIGRAM, INTRAVENOUS (NOT OTHERWISE SPECIFIED)
     Route: 042
     Dates: start: 20130207
  3. IRBESARTAN (IRBESARTAN) (UNKNOWN) [Concomitant]
     Dosage: 75MG PER DAY (UNK, 1 IN 1 D) ORAL
  4. PARACETAMOL (PARACETAMOL) (UNKNOWN [Concomitant]
     Dosage: UNK (1 GRAM, UNK), ORAL
  5. CHLORPHENIRAMINE (CHLORPHENAMINE) (UNKNOWN) [Concomitant]
     Dosage: (10 MG, UNK), IV
  6. PREDNISOLONE (PREDNISOLONE) (UNKNOWN) [Concomitant]
     Dosage: (100 MG, UNK), INTRAVENOUS
  7. ALLOPURINOL (ALLOPURINOL) (UNKNOWN) [Concomitant]

REACTIONS (2)
  - Upper respiratory tract infection [None]
  - Neutrophil count decreased [None]
